FAERS Safety Report 14312534 (Version 2)
Quarter: 2018Q1

REPORT INFORMATION
  Report Type: Spontaneous
  Country: US (occurrence: US)
  Receive Date: 20171221
  Receipt Date: 20180109
  Transmission Date: 20180509
  Serious: Yes (Hospitalization, Other)
  Sender: FDA-Public Use
  Company Number: US-AUROBINDO-AUR-APL-2017-45346

PATIENT
  Age: 76 Year
  Sex: Female

DRUGS (57)
  1. OLANZAPINE. [Interacting]
     Active Substance: OLANZAPINE
  2. DIVALPROEX [Suspect]
     Active Substance: DIVALPROEX SODIUM
     Indication: MANIA
     Dosage: 750 MG, ONCE A DAY
     Route: 065
  3. LORAZEPAM. [Suspect]
     Active Substance: LORAZEPAM
     Indication: MANIA
     Dosage: 1 MG, UNK
     Route: 065
  4. LEVOTHYROXINE. [Concomitant]
     Active Substance: LEVOTHYROXINE
  5. TRIMETHOPRIM. [Concomitant]
     Active Substance: TRIMETHOPRIM
  6. OLANZAPINE. [Interacting]
     Active Substance: OLANZAPINE
     Dosage: 20 MG, ONCE A DAY
     Route: 065
  7. QUETIAPINE. [Interacting]
     Active Substance: QUETIAPINE
     Indication: MANIA
     Dosage: 800 MG, UNK
  8. QUETIAPINE. [Interacting]
     Active Substance: QUETIAPINE
     Dosage: 300 MG, UNK
  9. DIVALPROEX [Suspect]
     Active Substance: DIVALPROEX SODIUM
  10. LORATADINE. [Concomitant]
     Active Substance: LORATADINE
  11. FUROSEMIDE. [Concomitant]
     Active Substance: FUROSEMIDE
  12. SULFAMETHOXAZOLE [Concomitant]
     Active Substance: SULFAMETHOXAZOLE
     Indication: URINARY TRACT INFECTION
     Dosage: ()
  13. SULFAMETHOXAZOLE [Concomitant]
     Active Substance: SULFAMETHOXAZOLE
     Dosage: ()
  14. GABAPENTIN. [Concomitant]
     Active Substance: GABAPENTIN
     Indication: MANIA
  15. GABAPENTIN. [Concomitant]
     Active Substance: GABAPENTIN
  16. CIPROFLOXACIN. [Concomitant]
     Active Substance: CIPROFLOXACIN
     Dosage: ()
  17. OLANZAPINE. [Interacting]
     Active Substance: OLANZAPINE
     Dosage: 10 MG, ONCE A DAY
     Route: 065
  18. QUETIAPINE. [Interacting]
     Active Substance: QUETIAPINE
     Dosage: 600 MG, UNK
  19. TRIMETHOPRIM+SULFAMETHOXAZOLE [Suspect]
     Active Substance: SULFAMETHOXAZOLE\TRIMETHOPRIM
     Indication: URINARY TRACT INFECTION
     Route: 065
  20. DIVALPROEX [Suspect]
     Active Substance: DIVALPROEX SODIUM
  21. AMLODIPINE [Concomitant]
     Active Substance: AMLODIPINE BESYLATE
  22. LORATADINE. [Concomitant]
     Active Substance: LORATADINE
     Indication: PRODUCT USED FOR UNKNOWN INDICATION
  23. OMEPRAZOLE. [Concomitant]
     Active Substance: OMEPRAZOLE
  24. QUETIAPINE. [Interacting]
     Active Substance: QUETIAPINE
     Indication: MANIA
     Dosage: 600 MG, ONCE A DAY
     Route: 065
  25. OXCARBAZEPINE. [Suspect]
     Active Substance: OXCARBAZEPINE
     Indication: AFFECTIVE DISORDER
     Dosage: UNK
     Route: 065
  26. ASPIRIN                            /00002701/ [Concomitant]
     Active Substance: ASPIRIN
     Indication: PRODUCT USED FOR UNKNOWN INDICATION
  27. METOPROLOL. [Concomitant]
     Active Substance: METOPROLOL
     Indication: PRODUCT USED FOR UNKNOWN INDICATION
  28. METOPROLOL. [Concomitant]
     Active Substance: METOPROLOL
  29. ACETYLSALICYLIC ACID [Concomitant]
     Active Substance: ASPIRIN
     Indication: PRODUCT USED FOR UNKNOWN INDICATION
  30. OLANZAPINE. [Suspect]
     Active Substance: OLANZAPINE
     Indication: MANIA
     Dosage: 5 MG, ONCE A DAY
     Route: 065
  31. AMLODIPINE [Concomitant]
     Active Substance: AMLODIPINE BESYLATE
  32. LEVOTHYROXINE. [Concomitant]
     Active Substance: LEVOTHYROXINE
  33. LORATADINE. [Concomitant]
     Active Substance: LORATADINE
  34. LORATADINE. [Concomitant]
     Active Substance: LORATADINE
  35. FUROSEMIDE. [Concomitant]
     Active Substance: FUROSEMIDE
     Indication: PRODUCT USED FOR UNKNOWN INDICATION
  36. DIVALPROEX [Suspect]
     Active Substance: DIVALPROEX SODIUM
     Dosage: 1000 MG, ONCE A DAY
     Route: 065
  37. OMEPRAZOLE. [Concomitant]
     Active Substance: OMEPRAZOLE
     Indication: PRODUCT USED FOR UNKNOWN INDICATION
  38. OMEPRAZOLE. [Concomitant]
     Active Substance: OMEPRAZOLE
  39. SULFAMETHOXAZOLE [Concomitant]
     Active Substance: SULFAMETHOXAZOLE
     Dosage: ()
  40. ACETYLSALICYLIC ACID [Concomitant]
     Active Substance: ASPIRIN
  41. ACETYLSALICYLIC ACID [Concomitant]
     Active Substance: ASPIRIN
  42. OLANZAPINE. [Interacting]
     Active Substance: OLANZAPINE
     Dosage: 10 MG, UNK
  43. LITHIUM. [Suspect]
     Active Substance: LITHIUM
     Indication: MANIA
     Dosage: 300 MG, ONCE A DAY
     Route: 065
  44. OXCARBAZEPINE. [Suspect]
     Active Substance: OXCARBAZEPINE
     Indication: MOOD ALTERED
     Dosage: TITRATED TO 600 MG/DAY
  45. AMLODIPINE [Concomitant]
     Active Substance: AMLODIPINE BESYLATE
  46. LEVOTHYROXINE. [Concomitant]
     Active Substance: LEVOTHYROXINE
     Indication: PRODUCT USED FOR UNKNOWN INDICATION
  47. METOPROLOL. [Concomitant]
     Active Substance: METOPROLOL
  48. CIPROFLOXACIN. [Concomitant]
     Active Substance: CIPROFLOXACIN
     Indication: URINARY TRACT INFECTION
     Dosage: ()
  49. AMLODIPINE [Concomitant]
     Active Substance: AMLODIPINE BESYLATE
     Indication: PRODUCT USED FOR UNKNOWN INDICATION
  50. LEVOTHYROXINE. [Concomitant]
     Active Substance: LEVOTHYROXINE
  51. METOPROLOL. [Concomitant]
     Active Substance: METOPROLOL
  52. FUROSEMIDE. [Concomitant]
     Active Substance: FUROSEMIDE
  53. FUROSEMIDE. [Concomitant]
     Active Substance: FUROSEMIDE
  54. OMEPRAZOLE. [Concomitant]
     Active Substance: OMEPRAZOLE
  55. SULFAMETHOXAZOLE [Concomitant]
     Active Substance: SULFAMETHOXAZOLE
     Dosage: ()
  56. GABAPENTIN. [Concomitant]
     Active Substance: GABAPENTIN
  57. ACETYLSALICYLIC ACID [Concomitant]
     Active Substance: ASPIRIN

REACTIONS (4)
  - Drug interaction [Recovered/Resolved]
  - Confusional state [Recovered/Resolved]
  - Hypothermia [Recovered/Resolved]
  - Sedation [Unknown]
